FAERS Safety Report 9455491 (Version 1)
Quarter: 2013Q3

REPORT INFORMATION
  Report Type: Spontaneous
  Country: US (occurrence: US)
  Receive Date: 20130813
  Receipt Date: 20130813
  Transmission Date: 20140515
  Serious: Yes (Hospitalization, Other)
  Sender: FDA-Public Use
  Company Number: 2013SP005711

PATIENT
  Age: 54 Year
  Sex: Female
  Weight: 56.69 kg

DRUGS (12)
  1. VANCOMYCIN [Suspect]
     Indication: ENDOCARDITIS
     Dates: start: 20130622, end: 20130703
  2. VANCOMYCIN [Suspect]
     Indication: OSTEOMYELITIS
     Dates: start: 20130622, end: 20130703
  3. ROCEPHIN [Suspect]
     Indication: ENDOCARDITIS
     Dates: start: 20130708, end: 20130711
  4. ROCEPHIN [Suspect]
     Indication: OSTEOMYELITIS
     Dates: start: 20130708, end: 20130711
  5. DALFOPRISTIN [Suspect]
     Indication: ENDOCARDITIS
     Dates: start: 20130726
  6. DALFOPRISTIN [Suspect]
     Indication: OSTEOMYELITIS
     Dates: start: 20130726
  7. QUINUPRISTIN [Suspect]
     Dates: start: 20130726
  8. ZYVOX [Suspect]
     Indication: ENDOCARDITIS
     Dates: start: 20130711, end: 20130726
  9. ZYVOX [Suspect]
     Indication: OSTEOMYELITIS
     Dates: start: 20130711, end: 20130726
  10. DAPTOMYCIN [Suspect]
     Indication: ENDOCARDITIS
     Dates: start: 20130703, end: 20130708
  11. DAPTOMYCIN [Suspect]
     Indication: OSTEOMYELITIS
     Dates: start: 20130703, end: 20130708
  12. HEPARIN [Concomitant]

REACTIONS (11)
  - Rash generalised [Unknown]
  - White blood cell count increased [Unknown]
  - Pyrexia [Unknown]
  - Rash [Unknown]
  - Platelet count decreased [Recovered/Resolved]
  - Anaemia [Unknown]
  - Cellulitis [Unknown]
  - Gait disturbance [Unknown]
  - Drug ineffective [Unknown]
  - Off label use [Unknown]
  - Drug administration error [Unknown]
